FAERS Safety Report 12540222 (Version 1)
Quarter: 2016Q3

REPORT INFORMATION
  Report Type: Spontaneous
  Country: US (occurrence: US)
  Receive Date: 20160708
  Receipt Date: 20160708
  Transmission Date: 20161109
  Serious: No
  Sender: FDA-Public Use
  Company Number: US-BEH-2016070428

PATIENT
  Sex: Female
  Weight: 61.22 kg

DRUGS (27)
  1. VIMPAT [Concomitant]
     Active Substance: LACOSAMIDE
  2. COMPAZINE [Concomitant]
     Active Substance: PROCHLORPERAZINE MALEATE
  3. VOLTAREN [Concomitant]
     Active Substance: DICLOFENAC SODIUM
  4. PROAIR HFA [Concomitant]
     Active Substance: ALBUTEROL SULFATE
  5. QVAR [Concomitant]
     Active Substance: BECLOMETHASONE DIPROPIONATE
  6. BIAXIN [Concomitant]
     Active Substance: CLARITHROMYCIN
  7. ACETAMINOPHEN. [Concomitant]
     Active Substance: ACETAMINOPHEN
  8. LIDOCAINE/PRILOCAINE [Concomitant]
     Active Substance: LIDOCAINE\PRILOCAINE
  9. VALTREX [Concomitant]
     Active Substance: VALACYCLOVIR HYDROCHLORIDE
  10. DIPHENHYDRAMINE. [Concomitant]
     Active Substance: DIPHENHYDRAMINE
  11. SOMA [Concomitant]
     Active Substance: CARISOPRODOL
  12. EPIPEN [Concomitant]
     Active Substance: EPINEPHRINE
  13. LOW-OGESTREL [Concomitant]
     Active Substance: ETHINYL ESTRADIOL\NORGESTREL
  14. NEXIUM [Concomitant]
     Active Substance: ESOMEPRAZOLE MAGNESIUM
  15. PHENERGAN [Concomitant]
     Active Substance: PROMETHAZINE HYDROCHLORIDE
  16. BOTOX [Concomitant]
     Active Substance: ONABOTULINUMTOXINA
  17. TOBRAMYCIN. [Concomitant]
     Active Substance: TOBRAMYCIN
  18. HYDROMORPHONE [Concomitant]
     Active Substance: HYDROMORPHONE
  19. PREDNISONE. [Concomitant]
     Active Substance: PREDNISONE
  20. SPORANOX [Concomitant]
     Active Substance: ITRACONAZOLE
  21. SONATA                             /00061001/ [Concomitant]
  22. HIZENTRA [Suspect]
     Active Substance: HUMAN IMMUNOGLOBULIN G
     Indication: SELECTIVE IGG SUBCLASS DEFICIENCY
     Dosage: 5 G, QW
     Route: 058
  23. GABAPENTIN. [Concomitant]
     Active Substance: GABAPENTIN
  24. OXYCODONE [Concomitant]
     Active Substance: OXYCODONE
  25. METHYLDOPA. [Concomitant]
     Active Substance: METHYLDOPA
  26. MIDRIN                             /00450801/ [Concomitant]
     Active Substance: ACETAMINOPHEN\DICHLORALPHENAZONE\ISOMETHEPTENE HYDROCHLORIDE
  27. BACLOFEN. [Concomitant]
     Active Substance: BACLOFEN

REACTIONS (1)
  - Sinusitis [Recovered/Resolved]
